FAERS Safety Report 4711932-9 (Version None)
Quarter: 2005Q2

REPORT INFORMATION
  Report Type: 
  Country: None (occurrence: None)
  Receive Date: 20050629
  Receipt Date: 20050511
  Transmission Date: 20051028
  Serious: No
  Sender: FDA-Public Use
  Company Number: 05P-163-0300263-00

PATIENT
  Age: 73 Year
  Sex: Female

DRUGS (10)
  1. HUMIRA [Suspect]
     Indication: RHEUMATOID ARTHRITIS
     Dosage: 40 MG, 1 IN 2 WK, SUBCUTANEOUS
     Route: 058
     Dates: start: 20041001, end: 20041101
  2. HUMIRA [Suspect]
     Indication: RHEUMATOID ARTHRITIS
     Dosage: 40 MG, 1 IN 2 WK, SUBCUTANEOUS
     Route: 058
     Dates: start: 20050401
  3. METHOTREXATE [Concomitant]
  4. HYZAAR [Concomitant]
  5. TIZANIDINE HYDROCHLORIDE [Concomitant]
  6. PREDNISONE [Concomitant]
  7. NAPROSYN [Concomitant]
  8. FOLIC ACID [Concomitant]
  9. VITAMINS [Concomitant]
  10. ACETAMINOPHEN [Concomitant]

REACTIONS (1)
  - HERPES ZOSTER [None]
